FAERS Safety Report 9797025 (Version 32)
Quarter: 2017Q3

REPORT INFORMATION
  Report Type: Report from Study
  Country: CA (occurrence: CA)
  Receive Date: 20140105
  Receipt Date: 20170713
  Transmission Date: 20171128
  Serious: Yes (Other)
  Sender: FDA-Public Use
  Company Number: CA-ROCHE-1268380

PATIENT
  Age: 55 Year
  Sex: Female

DRUGS (19)
  1. CRESTOR [Suspect]
     Active Substance: ROSUVASTATIN CALCIUM
     Indication: PRODUCT USED FOR UNKNOWN INDICATION
     Route: 065
     Dates: start: 2016, end: 2016
  2. COZAAR [Concomitant]
     Active Substance: LOSARTAN POTASSIUM
  3. DIPHENHYDRAMINE HCL [Concomitant]
     Active Substance: DIPHENHYDRAMINE HYDROCHLORIDE
     Indication: PREMEDICATION
     Route: 048
     Dates: start: 20140711
  4. CELEXA [Concomitant]
     Active Substance: CITALOPRAM HYDROBROMIDE
     Route: 065
     Dates: end: 201401
  5. ACTEMRA [Suspect]
     Active Substance: TOCILIZUMAB
     Indication: RHEUMATOID ARTHRITIS
     Route: 042
     Dates: start: 20130827, end: 20140530
  6. RITUXAN [Suspect]
     Active Substance: RITUXIMAB
     Indication: RHEUMATOID ARTHRITIS
     Route: 042
     Dates: start: 20140711
  7. RITUXAN [Suspect]
     Active Substance: RITUXIMAB
     Route: 042
     Dates: start: 20140725
  8. VITAMIN C [Concomitant]
     Active Substance: ASCORBIC ACID
  9. VITAMIN B2 [Concomitant]
     Active Substance: RIBOFLAVIN
  10. METHYLPREDNISOLONE. [Concomitant]
     Active Substance: METHYLPREDNISOLONE
     Indication: PREMEDICATION
     Route: 042
     Dates: start: 20140711
  11. AMITRIPTYLINE [Concomitant]
     Active Substance: AMITRIPTYLINE
  12. VITAMIN B3 [Concomitant]
     Active Substance: NIACIN
  13. ENBREL [Concomitant]
     Active Substance: ETANERCEPT
     Dosage: LAST DOSE11/JUL/2013  WAS INSTRUCTED 1 WEEK WASHOUT FROM LAST DOSE TAKEN
     Route: 065
  14. LOSEC [Concomitant]
     Active Substance: OMEPRAZOLE
  15. ACETAMINOPHEN. [Concomitant]
     Active Substance: ACETAMINOPHEN
     Indication: PREMEDICATION
     Route: 048
     Dates: start: 20140711
  16. HYDROCHLOROTHIAZIDE. [Concomitant]
     Active Substance: HYDROCHLOROTHIAZIDE
  17. LORAZEPAM. [Concomitant]
     Active Substance: LORAZEPAM
  18. VITAMIN B1 [Concomitant]
     Active Substance: THIAMINE HYDROCHLORIDE
  19. METHYLPREDNISOLONE. [Concomitant]
     Active Substance: METHYLPREDNISOLONE
     Indication: PREMEDICATION
     Route: 042
     Dates: start: 20140711

REACTIONS (35)
  - Pylorospasm [Not Recovered/Not Resolved]
  - Rheumatoid arthritis [Unknown]
  - Fatigue [Unknown]
  - Musculoskeletal stiffness [Unknown]
  - Eye inflammation [Not Recovered/Not Resolved]
  - Drug ineffective [Unknown]
  - Infusion related reaction [Recovered/Resolved]
  - Rheumatoid arthritis [Recovered/Resolved]
  - Ulcer [Not Recovered/Not Resolved]
  - Teeth brittle [Not Recovered/Not Resolved]
  - Dizziness [Recovered/Resolved]
  - Mood altered [Recovering/Resolving]
  - Oxygen saturation decreased [Unknown]
  - Lipase increased [Unknown]
  - Depression [Not Recovered/Not Resolved]
  - Irritability [Recovering/Resolving]
  - Throat irritation [Recovering/Resolving]
  - Body temperature decreased [Unknown]
  - Throat irritation [Unknown]
  - Muscle spasms [Recovered/Resolved]
  - Nausea [Recovered/Resolved]
  - Arthralgia [Not Recovered/Not Resolved]
  - Anxiety [Not Recovered/Not Resolved]
  - Cholelithiasis [Not Recovered/Not Resolved]
  - Feeling abnormal [Not Recovered/Not Resolved]
  - Fatigue [Recovered/Resolved]
  - Pain [Unknown]
  - Hypotension [Unknown]
  - Arthritis [Unknown]
  - Feeling cold [Recovering/Resolving]
  - Dyspepsia [Recovered/Resolved]
  - Throat irritation [Recovered/Resolved]
  - Pancreatic disorder [Not Recovered/Not Resolved]
  - Headache [Recovered/Resolved]
  - White blood cell count increased [Unknown]

NARRATIVE: CASE EVENT DATE: 20130827
